FAERS Safety Report 21377600 (Version 1)
Quarter: 2022Q3

REPORT INFORMATION
  Report Type: Spontaneous
  Country: US (occurrence: US)
  Receive Date: 20220926
  Receipt Date: 20220926
  Transmission Date: 20221027
  Serious: No
  Sender: FDA-Public Use
  Company Number: US-PFIZER INC-PV202200069618

PATIENT
  Age: 53 Year
  Sex: Female

DRUGS (11)
  1. IBRANCE [Suspect]
     Active Substance: PALBOCICLIB
     Indication: Breast cancer female
     Dosage: 100 MG, CYCLIC (TAKE 1 TABLET BY MOUTH DAILY FOR 21 DAYS FOLLOWED BY 7 DAYS OFF)
     Route: 048
     Dates: start: 20201022, end: 2022
  2. CALCIUM [Concomitant]
     Active Substance: CALCIUM
     Dosage: UNK
  3. GABAPENTIN [Concomitant]
     Active Substance: GABAPENTIN
     Dosage: 100 MG
  4. GABAPENTIN [Concomitant]
     Active Substance: GABAPENTIN
     Dosage: 400 MG
  5. MAGNESIUM OXIDE [Concomitant]
     Active Substance: MAGNESIUM OXIDE
     Dosage: 400 MG
  6. RIZATRIPTAN [Concomitant]
     Active Substance: RIZATRIPTAN
     Dosage: 10 MG
  7. VITAMIN B12 [Concomitant]
     Active Substance: CYANOCOBALAMIN
     Dosage: 100 UG
  8. VITAMIN D NOS [Concomitant]
     Active Substance: VITAMIN D NOS
     Dosage: 50000 IU
  9. ZOFRAN [Concomitant]
     Active Substance: ONDANSETRON HYDROCHLORIDE
     Dosage: 4 MG
  10. LETROZOLE [Concomitant]
     Active Substance: LETROZOLE
     Dosage: 2.5 MG
  11. MULTIVITAMIN [ASCORBIC ACID;CALCIUM PANTOTHENATE;COLECALCIFEROL;CYANOC [Concomitant]

REACTIONS (2)
  - Neoplasm progression [Not Recovered/Not Resolved]
  - Mucosal inflammation [Not Recovered/Not Resolved]
